FAERS Safety Report 8922662 (Version 3)
Quarter: 2013Q1

REPORT INFORMATION
  Report Type: Spontaneous
  Country: JP (occurrence: JP)
  Receive Date: 20121123
  Receipt Date: 20130307
  Transmission Date: 20140127
  Serious: Yes (Other)
  Sender: FDA-Public Use
  Company Number: JP-PFIZER INC-2012289887

PATIENT
  Age: 88 Year
  Sex: Male
  Weight: 32 kg

DRUGS (7)
  1. VFEND [Suspect]
     Indication: PNEUMONIA FUNGAL
     Dosage: 200 MG, 2X/DAY
     Route: 041
     Dates: start: 20121112, end: 20121112
  2. VFEND [Suspect]
     Dosage: 100 MG, 2X/DAY
     Route: 041
     Dates: start: 20121113, end: 20121117
  3. PREDONINE [Concomitant]
     Indication: STEROID THERAPY
     Route: 041
  4. PREDONINE [Concomitant]
     Indication: ORGANISING PNEUMONIA
  5. ZOSYN [Concomitant]
     Indication: PNEUMONIA BACTERIAL
     Dosage: 4.5 G, 3X/DAY
     Route: 041
     Dates: start: 20121107, end: 20121109
  6. ZOSYN [Concomitant]
     Dosage: 4.5 G, 4X/DAY
     Route: 041
     Dates: start: 20121110, end: 20121115
  7. ZOSYN [Concomitant]
     Dosage: 4.5 G, 3X/DAY
     Dates: start: 20121116

REACTIONS (1)
  - Altered state of consciousness [Recovered/Resolved]
